FAERS Safety Report 9174771 (Version 2)
Quarter: 2014Q1

REPORT INFORMATION
  Report Type: Spontaneous
  Country: US (occurrence: US)
  Receive Date: 20130320
  Receipt Date: 20140124
  Transmission Date: 20141002
  Serious: Yes (Other)
  Sender: FDA-Public Use
  Company Number: US-BAYER-2013-033297

PATIENT
  Age: 20 Year
  Sex: Female

DRUGS (27)
  1. YAZ [Suspect]
     Dosage: UNK
  2. YASMIN [Suspect]
     Dosage: UNK
  3. OCELLA [Suspect]
     Dosage: UNK
  4. ERYTHROMYCIN [Concomitant]
     Dosage: UNK
     Route: 061
  5. DIFFERIN [Concomitant]
     Dosage: 0.1 %, GEL APPLY TO FACE QHS
     Route: 061
  6. BACITRACIN [Concomitant]
     Dosage: 500 U/GM
     Route: 061
  7. HYDROCORTISONE [Concomitant]
     Dosage: 1 %, UNK
     Route: 061
  8. PENICILINA G BENZATINICA [Concomitant]
     Dosage: 1.2 MG, UNK
     Route: 030
  9. PREVIDENT [Concomitant]
     Dosage: 1.1 %, BEDTIME APPLY A THIN LAYER TO BRUSH AND BRUSH FIVE MINUTES
  10. CEPACOL [Concomitant]
     Indication: COUGH
     Dosage: UNK
  11. CEPACOL [Concomitant]
     Indication: OROPHARYNGEAL PAIN
  12. HALLS [Concomitant]
     Indication: COUGH
     Dosage: UNK
  13. HALLS [Concomitant]
     Indication: OROPHARYNGEAL PAIN
  14. PSEUDOEPHEDRINE [Concomitant]
     Indication: NASAL CONGESTION
     Dosage: 30 MG, 1-2 TABLETS EVERY 6 HOURS AS NEEDED
     Route: 048
  15. BENZONATATE [Concomitant]
     Dosage: 100 MG, UNK
     Route: 048
  16. PHENERGAN [Concomitant]
     Indication: NAUSEA
     Dosage: 25 MG, 8 HOURS
  17. PIMOZIDE [Concomitant]
     Indication: ANOGENITAL WARTS
     Dosage: UNK
  18. IBUPROFEN [Concomitant]
     Dosage: 800 MG, QID
     Route: 048
  19. CHLORHEXIDINE GLUCONATE [Concomitant]
     Dosage: 0.12 %, 15 ML FOR 30 SECONDS TWICE A DAY FOR 2 WEEKS, THEN ONCE A MONTH
  20. MUCINEX DM [Concomitant]
     Indication: UPPER RESPIRATORY TRACT INFECTION
     Dosage: 600/60 MG BID
     Route: 048
  21. CHLORASEPTIC [Concomitant]
     Indication: OROPHARYNGEAL PAIN
     Dosage: UNK UNK, PRN
  22. AUGMENTIN [Concomitant]
  23. REGLAN [Concomitant]
     Dosage: 10 MG, TID
  24. SEPTRA [Concomitant]
     Dosage: 1 BID
     Route: 048
  25. LEVAQUIN [Concomitant]
     Dosage: 750 MG, QD
     Route: 048
  26. CLINDA [Concomitant]
  27. DECADRON [Concomitant]

REACTIONS (4)
  - Cholecystectomy [None]
  - Emotional distress [None]
  - Injury [None]
  - Cholecystitis acute [None]
